FAERS Safety Report 23443600 (Version 2)
Quarter: 2024Q1

REPORT INFORMATION
  Report Type: Spontaneous
  Country: CA (occurrence: CA)
  Receive Date: 20240125
  Receipt Date: 20240222
  Transmission Date: 20240409
  Serious: Yes (Other)
  Sender: FDA-Public Use
  Company Number: CA-PFIZER INC-202300457146

PATIENT
  Age: 47 Year
  Sex: Female

DRUGS (10)
  1. CIBINQO [Suspect]
     Active Substance: ABROCITINIB
     Indication: Dermatitis atopic
     Dosage: 100 MG, 1X/DAY
     Route: 048
     Dates: start: 20231222, end: 20240117
  2. PNEUMOVAX NOS [Suspect]
     Active Substance: PNEUMOCOCCAL VACCINE POLYVALENT
     Dosage: DOSE 2, SINGLE
     Dates: start: 20240112, end: 20240112
  3. SHINGRIX [Suspect]
     Active Substance: RECOMBINANT VARICELLA ZOSTER VIRUS (VZV) GLYCOPROTEIN E
     Dosage: DOSE 2, SINGLE
     Dates: start: 20240112, end: 20240112
  4. CITALOPRAM [Concomitant]
     Active Substance: CITALOPRAM HYDROBROMIDE
     Indication: Anxiety
  5. DESONIDE [Concomitant]
     Active Substance: DESONIDE
     Dosage: UNK
  6. DUPIXENT [Concomitant]
     Active Substance: DUPILUMAB
     Dosage: UNK
  7. PROTOPIC [Concomitant]
     Active Substance: TACROLIMUS
     Dosage: UNK
  8. FERROUS SULFATE [Concomitant]
     Active Substance: FERROUS SULFATE
     Indication: Anaemia
  9. TOPISONE [Concomitant]
     Dosage: UNK
  10. VYVANSE [Concomitant]
     Active Substance: LISDEXAMFETAMINE DIMESYLATE
     Indication: Attention deficit hyperactivity disorder

REACTIONS (16)
  - Vomiting [Recovering/Resolving]
  - Confusional state [Unknown]
  - Nausea [Not Recovered/Not Resolved]
  - Chills [Not Recovered/Not Resolved]
  - Oral herpes [Not Recovered/Not Resolved]
  - Vulvovaginal burning sensation [Not Recovered/Not Resolved]
  - Eye irritation [Not Recovered/Not Resolved]
  - Dyspepsia [Not Recovered/Not Resolved]
  - Dermatitis atopic [Not Recovered/Not Resolved]
  - Nasal congestion [Not Recovered/Not Resolved]
  - Dizziness [Not Recovered/Not Resolved]
  - Hyperhidrosis [Not Recovered/Not Resolved]
  - Diarrhoea [Recovering/Resolving]
  - Fatigue [Recovering/Resolving]
  - Myalgia [Recovering/Resolving]
  - Pyrexia [Recovering/Resolving]

NARRATIVE: CASE EVENT DATE: 20230101
